FAERS Safety Report 8534666-1 (Version None)
Quarter: 2012Q3

REPORT INFORMATION
  Report Type: 
  Country: None (occurrence: None)
  Receive Date: 20120724
  Receipt Date: 20120716
  Transmission Date: 20120928
  Serious: Yes (Hospitalization)
  Sender: FDA-Public Use
  Company Number: US-GLAXOSMITHKLINE-A0876809A

PATIENT
  Age: 46 Year
  Sex: Male

DRUGS (7)
  1. PRINIVIL [Concomitant]
  2. NEURONTIN [Concomitant]
  3. VIAGRA [Concomitant]
  4. COZAAR [Concomitant]
  5. AVANDIA [Suspect]
     Indication: DIABETES MELLITUS
     Dosage: 4MG PER DAY
     Route: 048
     Dates: start: 20000302
  6. GLUCOVANCE [Concomitant]
  7. LIPITOR [Concomitant]

REACTIONS (5)
  - MYOCARDIAL ISCHAEMIA [None]
  - CAROTID ARTERY OCCLUSION [None]
  - CORONARY ARTERY DISEASE [None]
  - ACUTE CORONARY SYNDROME [None]
  - CEREBROVASCULAR ACCIDENT [None]
